FAERS Safety Report 11864318 (Version 1)
Quarter: 2015Q4

REPORT INFORMATION
  Report Type: Report from Study
  Country: US (occurrence: US)
  Receive Date: 20151223
  Receipt Date: 20151223
  Transmission Date: 20160305
  Serious: Yes (Hospitalization)
  Sender: FDA-Public Use
  Company Number: US-ABBVIE-15P-163-1410588-00

PATIENT
  Age: 14 Year

DRUGS (3)
  1. DESMOPRESSIN ACETATE. [Concomitant]
     Active Substance: DESMOPRESSIN ACETATE
     Indication: PRODUCT USED FOR UNKNOWN INDICATION
  2. CITALOPRAM HYDROBROMIDE. [Concomitant]
     Active Substance: CITALOPRAM HYDROBROMIDE
     Indication: DEPRESSION
  3. LUPRON DEPOT [Suspect]
     Active Substance: LEUPROLIDE ACETATE
     Indication: PUBERTY
     Route: 030
     Dates: start: 201502, end: 201502

REACTIONS (4)
  - Depression [Not Recovered/Not Resolved]
  - Social phobia [Unknown]
  - Suicidal ideation [Unknown]
  - Mood swings [Unknown]

NARRATIVE: CASE EVENT DATE: 201502
